FAERS Safety Report 23745206 (Version 1)
Quarter: 2024Q2

REPORT INFORMATION
  Report Type: Spontaneous
  Country: US (occurrence: US)
  Receive Date: 20240416
  Receipt Date: 20240416
  Transmission Date: 20240715
  Serious: No
  Sender: FDA-Public Use
  Company Number: ENDG23-02891

PATIENT
  Age: 48 Year
  Sex: Female
  Weight: 63.492 kg

DRUGS (4)
  1. FLUVOXAMINE MALEATE [Suspect]
     Active Substance: FLUVOXAMINE MALEATE
     Indication: Obsessive-compulsive disorder
     Dosage: UNK UNKNOWN, UNKNOWN (TOOK TWO CAPSULES)
     Route: 048
     Dates: start: 202305
  2. FLUVOXAMINE MALEATE [Suspect]
     Active Substance: FLUVOXAMINE MALEATE
     Indication: Anxiety
  3. FLUVOXAMINE MALEATE [Suspect]
     Active Substance: FLUVOXAMINE MALEATE
     Indication: Obsessive-compulsive disorder
     Dosage: UNK UNKNOWN, UNKNOWN
     Route: 048
     Dates: start: 20221227
  4. FLUVOXAMINE MALEATE [Suspect]
     Active Substance: FLUVOXAMINE MALEATE
     Indication: Anxiety

REACTIONS (7)
  - Incontinence [Not Recovered/Not Resolved]
  - Contusion [Not Recovered/Not Resolved]
  - Irritability [Not Recovered/Not Resolved]
  - Insomnia [Not Recovered/Not Resolved]
  - Muscle spasms [Not Recovered/Not Resolved]
  - Wrong dose [Unknown]
  - Drug ineffective [Unknown]
